FAERS Safety Report 13860718 (Version 1)
Quarter: 2017Q3

REPORT INFORMATION
  Report Type: Spontaneous
  Country: US (occurrence: US)
  Receive Date: 20170811
  Receipt Date: 20170811
  Transmission Date: 20171127
  Serious: Yes (Death, Life-Threatening, Hospitalization)
  Sender: FDA-Public Use
  Company Number: None

PATIENT
  Age: 60 Year
  Sex: Male
  Weight: 51.3 kg

DRUGS (2)
  1. AVINZA [Suspect]
     Active Substance: MORPHINE SULFATE
     Indication: NECK PAIN
     Dosage: ?          QUANTITY::UCH AS TO DRUGS, FOODS.;?
     Route: 048
  2. AVINZA [Suspect]
     Active Substance: MORPHINE SULFATE
     Indication: SPINAL FUSION SURGERY
     Dosage: ?          QUANTITY::UCH AS TO DRUGS, FOODS.;?
     Route: 048

REACTIONS (2)
  - Overdose [None]
  - Pancreatitis [None]

NARRATIVE: CASE EVENT DATE: 2012
